FAERS Safety Report 7792888-1 (Version None)
Quarter: 2011Q4

REPORT INFORMATION
  Report Type: 
  Country: None (occurrence: None)
  Receive Date: 20111003
  Receipt Date: 20110920
  Transmission Date: 20120403
  Serious: Yes (Hospitalization)
  Sender: FDA-Public Use
  Company Number: FR-BRISTOL-MYERS SQUIBB COMPANY-16076416

PATIENT
  Age: 81 Year
  Sex: Female

DRUGS (18)
  1. DIGOXIN [Suspect]
     Dosage: 6 OUT OF 7 DYS FOR A LONG TIME,DIGOXINE NATIVELLE 0.25 MG TABS
     Route: 048
     Dates: end: 20110822
  2. LANSOPRAZOLE [Suspect]
     Dosage: LANSOPRAZOLE  15 GASTRO RESISTANT CAPS
     Route: 048
     Dates: start: 20110706, end: 20110822
  3. LEVOTHYROXINE SODIUM [Concomitant]
     Dosage: TABS
  4. DAFALGAN CODEINE TABS [Suspect]
     Dosage: 169 DAYS,DAFALGAN CODEINE TABS  COATED TABS 2DF 2 IN 1 D
     Route: 048
     Dates: start: 20110316, end: 20110822
  5. FUROSEMIDE [Suspect]
     Dosage: TABS
     Route: 048
     Dates: end: 20110822
  6. PREVISCAN [Suspect]
     Dosage: PRODUCT STRENGTH IS 20MG 1DF IS 0.75 UNITS NOT SPECIFIED
     Route: 048
     Dates: end: 20110822
  7. METOPROLOL TARTRATE [Concomitant]
     Dosage: TAB
  8. MONOPLUS TABS 20 MG/12.5 MG [Suspect]
     Dosage: PRODUCT STRENGTH IS 20MG/12.5 MG
     Route: 048
     Dates: end: 20110822
  9. PIASCLEDINE [Suspect]
     Dosage: CAPS
     Route: 048
     Dates: end: 20110822
  10. LOPERAMIDE HCL [Suspect]
     Dosage: FOR 48 DAYS
     Route: 048
     Dates: start: 20110706, end: 20110822
  11. ZOLPIDEM [Suspect]
     Route: 048
     Dates: start: 20110706, end: 20110822
  12. PHLOROGLUCINOL [Suspect]
     Dosage: FOR 7 DAYS
     Route: 048
     Dates: start: 20110816, end: 20110822
  13. FLECTOR [Suspect]
     Dosage: FLECTOR 1% GEL
     Route: 003
     Dates: start: 20110608, end: 20110822
  14. ALUMINUM HYDROXIDE AND MAGNESIUM TRISILICATE [Suspect]
     Route: 048
     Dates: start: 20110816, end: 20110822
  15. ONGLYZA [Suspect]
     Dosage: FOR 48 DAYS
     Route: 048
     Dates: start: 20110706, end: 20110822
  16. GLUCOPHAGE [Suspect]
     Dosage: FOR A LONG TIME
     Route: 048
     Dates: end: 20110822
  17. CRESTOR [Suspect]
     Dosage: FOR A LONG TIME,CRESTOR  COATED TABS5MG
     Route: 048
     Dates: end: 20110822
  18. DOMPERIDONE [Suspect]
     Dosage: 3 TO 6 TIMES IN A DY
     Route: 048
     Dates: start: 20110706, end: 20110822

REACTIONS (6)
  - RENAL FAILURE [None]
  - METABOLIC ACIDOSIS [None]
  - DIARRHOEA [None]
  - HYPERKALAEMIA [None]
  - DEHYDRATION [None]
  - GENERAL PHYSICAL HEALTH DETERIORATION [None]
